FAERS Safety Report 13915986 (Version 1)
Quarter: 2017Q3

REPORT INFORMATION
  Report Type: Spontaneous
  Country: US (occurrence: US)
  Receive Date: 20170829
  Receipt Date: 20170829
  Transmission Date: 20171127
  Serious: Yes (Hospitalization)
  Sender: FDA-Public Use
  Company Number: US-PROCTER+GAMBLE-GS17091917

PATIENT
  Age: 96 Year
  Sex: Male

DRUGS (5)
  1. ANTIBIOTICS [Suspect]
     Active Substance: UNSPECIFIED INGREDIENT
     Indication: URINARY TRACT INFECTION
     Route: 048
  2. METAMUCIL [Suspect]
     Active Substance: PLANTAGO SEED
     Dosage: 3 CAPSUL, LATER IN THE DAY
     Route: 048
  3. METAMUCIL [Suspect]
     Active Substance: PLANTAGO SEED
     Dosage: 5 CAPSUL, MORNING
     Route: 048
  4. ANTIBIOTICS [Suspect]
     Active Substance: UNSPECIFIED INGREDIENT
  5. DRINKING A LOT OF WATER [Suspect]
     Active Substance: WATER

REACTIONS (5)
  - Gastrointestinal disorder [Not Recovered/Not Resolved]
  - Blood sodium decreased [Unknown]
  - Urinary tract infection [Recovering/Resolving]
  - Frequent bowel movements [Not Recovered/Not Resolved]
  - Clostridium difficile infection [Recovering/Resolving]

NARRATIVE: CASE EVENT DATE: 201701
